FAERS Safety Report 14860299 (Version 2)
Quarter: 2019Q2

REPORT INFORMATION
  Report Type: Spontaneous
  Country: US (occurrence: US)
  Receive Date: 20180508
  Receipt Date: 20190515
  Transmission Date: 20190711
  Serious: No
  Sender: FDA-Public Use
  Company Number: US-009507513-1804USA011137

PATIENT
  Sex: Female

DRUGS (2)
  1. CLARITIN [Concomitant]
     Active Substance: LORATADINE
     Dosage: UNK
  2. ASMANEX [Suspect]
     Active Substance: MOMETASONE FUROATE
     Indication: ASTHMA
     Dosage: UNK
     Route: 055
     Dates: start: 2013

REACTIONS (5)
  - Product container issue [Unknown]
  - Expired product administered [Unknown]
  - Cough [Recovered/Resolved]
  - Poor quality device used [Unknown]
  - Inappropriate schedule of product administration [Unknown]
